FAERS Safety Report 4930904-2 (Version None)
Quarter: 2006Q1

REPORT INFORMATION
  Report Type: 
  Country: None (occurrence: None)
  Receive Date: 20060227
  Receipt Date: 20060220
  Transmission Date: 20060701
  Serious: Yes (Other)
  Sender: FDA-Public Use
  Company Number: S05-FRA-05339-01

PATIENT
  Age: 87 Year
  Sex: Male

DRUGS (14)
  1. EBIXA (MEMANTNE) [Suspect]
     Indication: DEMENTIA ALZHEIMER'S TYPE
     Dosage: 20 MG QD PO
     Route: 048
     Dates: end: 20030420
  2. MEMANTINE HCL [Suspect]
     Indication: DEMENTIA ALZHEIMER'S TYPE
     Dosage: 15 MG QD PO
     Route: 048
  3. MEMANTINE HCL [Suspect]
     Indication: DEMENTIA ALZHEIMER'S TYPE
     Dosage: 10 MG QD PO
     Route: 048
  4. MEMANTINE HCL [Suspect]
     Indication: DEMENTIA ALZHEIMER'S TYPE
     Dosage: 5 MG QD PO
     Route: 048
     Dates: start: 20030310
  5. MELLERIL  DRESDEN (THIORIDIAZINE HYDROCHLORIDE) [Suspect]
  6. ASPIRIN [Concomitant]
  7. ENALAPRIL MALEATE [Concomitant]
  8. AMLODIPINE BESYLATE [Concomitant]
  9. NOOTROPYL (PIRACETAM) [Concomitant]
  10. IMOVANE (ZOPICLONE) [Concomitant]
  11. FORLAX (MACROGOL) [Concomitant]
  12. HUILE DE PARAFFINE  GILBERT (PARAFFIN, LIQUID) [Concomitant]
  13. CELEBREX [Concomitant]
  14. DI-ANTALVIC [Concomitant]

REACTIONS (6)
  - ALANINE AMINOTRANSFERASE INCREASED [None]
  - ASPARTATE AMINOTRANSFERASE INCREASED [None]
  - BLOOD ALKALINE PHOSPHATASE INCREASED [None]
  - GAMMA-GLUTAMYLTRANSFERASE INCREASED [None]
  - MALAISE [None]
  - SEPTIC SHOCK [None]
